FAERS Safety Report 7899181-7 (Version None)
Quarter: 2011Q4

REPORT INFORMATION
  Report Type: 
  Country: None (occurrence: None)
  Receive Date: 20111107
  Receipt Date: 20110912
  Transmission Date: 20120403
  Serious: No
  Sender: FDA-Public Use
  Company Number: US-AMGEN-USASP2011046614

PATIENT
  Age: 7 Year
  Sex: Female

DRUGS (1)
  1. ENBREL [Suspect]
     Indication: PSORIATIC ARTHROPATHY
     Dates: start: 20050101, end: 20060101

REACTIONS (4)
  - HAIR COLOUR CHANGES [None]
  - INJECTION SITE PAIN [None]
  - HOT FLUSH [None]
  - BREAST ENLARGEMENT [None]
